FAERS Safety Report 19553952 (Version 1)
Quarter: 2021Q3

REPORT INFORMATION
  Report Type: Report from Study
  Country: AU (occurrence: AU)
  Receive Date: 20210715
  Receipt Date: 20210715
  Transmission Date: 20211014
  Serious: Yes (Death, Other)
  Sender: FDA-Public Use
  Company Number: AU-GLAXOSMITHKLINE-AU2021GSK151319

PATIENT
  Sex: Female

DRUGS (3)
  1. BELANTAMAB MAFODOTIN. [Suspect]
     Active Substance: BELANTAMAB MAFODOTIN
     Dosage: 3.4MG/KG OR 2.5MG/KG EVERY 3 WEEKS
     Route: 042
     Dates: start: 20210610
  2. BELANTAMAB MAFODOTIN. [Suspect]
     Active Substance: BELANTAMAB MAFODOTIN
     Indication: PLASMA CELL MYELOMA
     Dosage: 3.4MG/KG OR 2.5MG/KG EVERY 3 WEEKS
     Route: 042
     Dates: start: 20210428
  3. BELANTAMAB MAFODOTIN. [Suspect]
     Active Substance: BELANTAMAB MAFODOTIN
     Dosage: 3.4MG/KG OR 2.5MG/KG EVERY 3 WEEKS
     Route: 042
     Dates: start: 20210521

REACTIONS (1)
  - Plasma cell myeloma [Fatal]
